FAERS Safety Report 7444844-0 (Version None)
Quarter: 2011Q2

REPORT INFORMATION
  Report Type: 
  Country: None (occurrence: None)
  Receive Date: 20110429
  Receipt Date: 20110414
  Transmission Date: 20111010
  Serious: No
  Sender: FDA-Public Use
  Company Number: US-BAYER-2011-033093

PATIENT
  Sex: Female

DRUGS (2)
  1. PENICILLIN [Concomitant]
     Indication: TOOTH ABSCESS
     Dosage: UNK
  2. MIRENA [Suspect]
     Dosage: 20 ?G, CONT
     Route: 015

REACTIONS (3)
  - BREAST TENDERNESS [None]
  - POLLAKIURIA [None]
  - PREGNANCY WITH CONTRACEPTIVE DEVICE [None]
